FAERS Safety Report 11019137 (Version 1)
Quarter: 2015Q2

REPORT INFORMATION
  Report Type: Report from Study
  Country: BR (occurrence: BR)
  Receive Date: 20150412
  Receipt Date: 20150412
  Transmission Date: 20150821
  Serious: Yes (Other)
  Sender: FDA-Public Use
  Company Number: PHHY2015BR042912

PATIENT
  Age: 5 Year
  Sex: Male
  Weight: 55 kg

DRUGS (2)
  1. TRILEPTAL [Suspect]
     Active Substance: OXCARBAZEPINE
     Indication: SEIZURE
     Dosage: UNK OT, BID
     Route: 048
  2. TEGRETOL [Suspect]
     Active Substance: CARBAMAZEPINE
     Indication: SEIZURE
     Dosage: UNK OT, QD
     Route: 048

REACTIONS (5)
  - Drug ineffective [Unknown]
  - Urinary incontinence [Unknown]
  - Brain malformation [Unknown]
  - Crying [Unknown]
  - Hydrocephalus [Unknown]

NARRATIVE: CASE EVENT DATE: 201411
